FAERS Safety Report 9242109 (Version 1)
Quarter: 2013Q2

REPORT INFORMATION
  Report Type: Spontaneous
  Country: US (occurrence: US)
  Receive Date: 20130419
  Receipt Date: 20130419
  Transmission Date: 20140414
  Serious: Yes (Life-Threatening, Hospitalization)
  Sender: FDA-Public Use
  Company Number: US-JNJFOC-20130406262

PATIENT
  Age: 68 Year
  Sex: Male
  Weight: 95 kg

DRUGS (15)
  1. CALCIUM CARBONATE [Suspect]
     Indication: ABDOMINAL DISCOMFORT
     Dosage: 15-20 TABLETS
     Route: 048
  2. CALCIUM [Suspect]
     Indication: MEDICAL DIET
     Route: 065
  3. VALSARTAN/HYDROCHLOROTHIAZIDE [Suspect]
     Indication: PRODUCT USED FOR UNKNOWN INDICATION
     Dosage: 320 MG/ 25 MG
     Route: 065
  4. VITAMIN D [Suspect]
     Indication: MEDICAL DIET
     Route: 065
  5. AMLODIPINE [Concomitant]
     Route: 065
  6. CEFDINIR [Concomitant]
     Indication: SINUSITIS
     Dosage: STARTED 3 DAYS BEFORE HOSPITAL ADMISSION
     Route: 065
  7. COLESEVELAM [Concomitant]
     Route: 065
  8. EZETIMIBE [Concomitant]
     Route: 065
  9. LANOXIN [Concomitant]
     Route: 065
  10. LANOXIN [Concomitant]
     Route: 065
  11. VARDENAFIL [Concomitant]
     Route: 065
  12. AMINO ACIDS [Concomitant]
     Route: 065
  13. MAGNESIUM [Concomitant]
     Route: 065
  14. PANCREATIC ENZYMES [Concomitant]
     Indication: MEDICAL DIET
     Route: 065
  15. ASPIRIN [Concomitant]
     Route: 065

REACTIONS (2)
  - Pancreatitis necrotising [Unknown]
  - Hypercalcaemia [Unknown]
